FAERS Safety Report 21468638 (Version 2)
Quarter: 2023Q1

REPORT INFORMATION
  Report Type: Spontaneous
  Country: PL (occurrence: PL)
  Receive Date: 20221017
  Receipt Date: 20230113
  Transmission Date: 20230417
  Serious: Yes (Other)
  Sender: FDA-Public Use
  Company Number: PL-BRISTOL-MYERS SQUIBB COMPANY-2022-121709

PATIENT
  Age: 61 Year
  Sex: Male

DRUGS (1)
  1. NIVOLUMAB [Suspect]
     Active Substance: NIVOLUMAB
     Indication: Renal cell carcinoma
     Dosage: DOSE : 240MG;     FREQ : 240MG  EVERY 2 WEEKS
     Route: 042
     Dates: start: 20181220

REACTIONS (10)
  - Pulmonary toxicity [Unknown]
  - Diarrhoea [Unknown]
  - Rash erythematous [Recovered/Resolved]
  - Pulmonary oedema [Unknown]
  - Rash [Recovered/Resolved]
  - Oral toxicity [Unknown]
  - Emphysema [Unknown]
  - Fibrosis [Unknown]
  - Bronchiolitis [Unknown]
  - Tumour pseudoprogression [Unknown]

NARRATIVE: CASE EVENT DATE: 20200101
